FAERS Safety Report 4455636-9 (Version None)
Quarter: 2004Q3

REPORT INFORMATION
  Report Type: 
  Country: None (occurrence: None)
  Receive Date: 20040917
  Receipt Date: 20040707
  Transmission Date: 20050211
  Serious: No
  Sender: FDA-Public Use
  Company Number: 2004UW13380

PATIENT
  Age: 53 Year
  Sex: Female

DRUGS (11)
  1. ZOMIG [Suspect]
     Indication: MIGRAINE
     Dates: start: 19980101
  2. VALPROIC ACID [Suspect]
     Dosage: 1500 MG DAILY
     Dates: start: 19980101
  3. WPAVIEL [Suspect]
     Dosage: 1375 MG DAILY
     Dates: start: 20040501
  4. EFFEXOR [Concomitant]
  5. EFFEXOR XR [Concomitant]
  6. TRYPTOHAN [Concomitant]
  7. RISPERIDONE [Concomitant]
  8. LOPRESSOR [Concomitant]
  9. IMOVANE [Concomitant]
  10. LITHIUM [Concomitant]
  11. SEROQUEL [Concomitant]

REACTIONS (1)
  - DRUG LEVEL INCREASED [None]
